FAERS Safety Report 5895151-9 (Version None)
Quarter: 2008Q3

REPORT INFORMATION
  Report Type: 
  Country: None (occurrence: None)
  Receive Date: 20080924
  Receipt Date: 20080911
  Transmission Date: 20090109
  Serious: Yes (Other)
  Sender: FDA-Public Use
  Company Number: US-BAYER-200813735BCC

PATIENT
  Age: 70 Year
  Sex: Female
  Weight: 67 kg

DRUGS (7)
  1. CITRACAL MAXIMUM CAPLETS + D [Suspect]
     Indication: MINERAL SUPPLEMENTATION
     Dosage: TOTAL DAILY DOSE: 4 DF  UNIT DOSE: 1 DF
     Route: 048
     Dates: start: 20030101
  2. ASPIRIN [Suspect]
     Indication: ISCHAEMIC HEART DISEASE PROPHYLAXIS
     Dosage: TOTAL DAILY DOSE: 325 MG  UNIT DOSE: 325 MG
     Route: 048
     Dates: start: 20071001
  3. SYNTHROID [Concomitant]
  4. BONIVA [Concomitant]
  5. AMLODIPINE BESYLATE [Concomitant]
  6. HYDROXYCHLOROQUINE [Concomitant]
  7. RED YEAST RICE [Concomitant]

REACTIONS (6)
  - ANAEMIA [None]
  - COELIAC DISEASE [None]
  - DIARRHOEA [None]
  - FLATULENCE [None]
  - RHEUMATOID ARTHRITIS [None]
  - WEIGHT DECREASED [None]
